FAERS Safety Report 9014749 (Version 1)
Quarter: 2013Q1

REPORT INFORMATION
  Report Type: Spontaneous
  Country: US (occurrence: US)
  Receive Date: 20130115
  Receipt Date: 20130115
  Transmission Date: 20140127
  Serious: Yes (Other)
  Sender: FDA-Public Use
  Company Number: US-009507513-1301USA003680

PATIENT
  Age: 62 Year
  Sex: Female

DRUGS (1)
  1. SINGULAIR [Suspect]
     Indication: ASTHMA
     Dosage: 5 MGM, UNK
     Route: 048

REACTIONS (3)
  - Sleep disorder [Unknown]
  - Nightmare [Unknown]
  - Agitation [Unknown]
